FAERS Safety Report 4770929-3 (Version None)
Quarter: 2005Q3

REPORT INFORMATION
  Report Type: 
  Country: None (occurrence: None)
  Receive Date: 20050915
  Receipt Date: 20050907
  Transmission Date: 20060218
  Serious: Yes (Hospitalization)
  Sender: FDA-Public Use
  Company Number: 200517879GDDC

PATIENT
  Age: 14 Year
  Sex: Female

DRUGS (1)
  1. DESMOSPRAY [Suspect]
     Dosage: DOSE: UNK
     Route: 045

REACTIONS (2)
  - CHEST PAIN [None]
  - DYSPNOEA [None]
